FAERS Safety Report 12704663 (Version 1)
Quarter: 2016Q3

REPORT INFORMATION
  Report Type: Spontaneous
  Country: DO (occurrence: DO)
  Receive Date: 20160831
  Receipt Date: 20160831
  Transmission Date: 20161109
  Serious: Yes (Other)
  Sender: FDA-Public Use
  Company Number: PHHY2016DO118808

PATIENT
  Age: 81 Year
  Sex: Female

DRUGS (1)
  1. EXFORGE [Suspect]
     Active Substance: AMLODIPINE BESYLATE\VALSARTAN
     Indication: PRODUCT USED FOR UNKNOWN INDICATION
     Dosage: 320/10 (UNITS NOT PROVIDED)
     Route: 065

REACTIONS (3)
  - Feeling abnormal [Unknown]
  - Hip fracture [Unknown]
  - Fall [Unknown]
